FAERS Safety Report 9155238 (Version 1)
Quarter: 2013Q1

REPORT INFORMATION
  Report Type: Spontaneous
  Country: US (occurrence: US)
  Receive Date: 20130311
  Receipt Date: 20130311
  Transmission Date: 20140127
  Serious: No
  Sender: FDA-Public Use
  Company Number: US-PFIZER INC-2013082030

PATIENT
  Age: 43 Year
  Sex: Male
  Weight: 70.3 kg

DRUGS (2)
  1. LYRICA [Suspect]
     Indication: NEUROPATHY PERIPHERAL
     Dosage: 50 MG, 2X/DAY
     Dates: start: 2012
  2. LAMOTRIGINE [Concomitant]
     Indication: EPILEPSY
     Dosage: 100 MG, 2X/DAY

REACTIONS (2)
  - Increased appetite [Recovered/Resolved]
  - Weight increased [Recovered/Resolved]
